FAERS Safety Report 18485261 (Version 1)
Quarter: 2020Q4

REPORT INFORMATION
  Report Type: Spontaneous
  Country: US (occurrence: US)
  Receive Date: 20201109
  Receipt Date: 20201109
  Transmission Date: 20210114
  Serious: Yes (Other)
  Sender: FDA-Public Use
  Company Number: None

PATIENT
  Age: 54 Year
  Sex: Male
  Weight: 119 kg

DRUGS (1)
  1. COVID-19 CONVALESCENT PLASMA. [Suspect]
     Active Substance: COVID-19 CONVALESCENT PLASMA
     Indication: COVID-19
     Route: 042
     Dates: start: 20201109, end: 20201109

REACTIONS (4)
  - Tachycardia [None]
  - Fluid overload [None]
  - Pulmonary congestion [None]
  - Dyspnoea [None]

NARRATIVE: CASE EVENT DATE: 20201109
